FAERS Safety Report 4506950-X (Version None)
Quarter: 2004Q4

REPORT INFORMATION
  Report Type: 
  Country: None (occurrence: None)
  Receive Date: 20041117
  Receipt Date: 20041108
  Transmission Date: 20050328
  Serious: Yes (Death, Other)
  Sender: FDA-Public Use
  Company Number: 2004-09-1864

PATIENT
  Age: 62 Year
  Sex: Female
  Weight: 73 kg

DRUGS (12)
  1. INTRON A [Suspect]
     Indication: HEPATITIS C
     Dosage: SEE IMAGE
     Route: 030
     Dates: start: 20040901, end: 20040924
  2. INTRON A [Suspect]
     Indication: HEPATITIS C
     Dosage: SEE IMAGE
     Route: 030
     Dates: start: 20040901, end: 20040930
  3. INTRON A [Suspect]
     Indication: HEPATITIS C
     Dosage: SEE IMAGE
     Route: 030
     Dates: start: 20040926, end: 20040930
  4. REBETOL [Suspect]
     Indication: HEPATITIS C
     Dosage: SEE IMAGE
     Route: 048
     Dates: start: 20040901, end: 20040924
  5. REBETOL [Suspect]
     Indication: HEPATITIS C
     Dosage: SEE IMAGE
     Route: 048
     Dates: start: 20040901, end: 20040928
  6. REBETOL [Suspect]
     Indication: HEPATITIS C
     Dosage: SEE IMAGE
     Route: 048
     Dates: start: 20040925, end: 20040928
  7. AMLODIPINE BESILATE TABLETS [Concomitant]
  8. CARDENALIN (DOXAZOSIN  MESILATE0 [Concomitant]
  9. DIOVAN TABLETS [Concomitant]
  10. ALESION (EPINASTINE HYDROCHLORIDE) [Concomitant]
  11. ZOLPIDEM TARTRATE [Concomitant]
  12. VOLTAREN [Concomitant]

REACTIONS (15)
  - ABSCESS [None]
  - ANOREXIA [None]
  - ATELECTASIS [None]
  - CHEST PAIN [None]
  - HAEMOGLOBIN DECREASED [None]
  - HAEMOTHORAX [None]
  - PLEURAL EFFUSION [None]
  - PLEURISY [None]
  - PNEUMONIA [None]
  - PYOTHORAX [None]
  - PYREXIA [None]
  - SEPSIS [None]
  - SHOCK [None]
  - VIRAL INFECTION [None]
  - VOMITING [None]
